FAERS Safety Report 22120268 (Version 1)
Quarter: 2023Q1

REPORT INFORMATION
  Report Type: Report from Study
  Country: IT (occurrence: IT)
  Receive Date: 20230321
  Receipt Date: 20230321
  Transmission Date: 20230418
  Serious: Yes (Hospitalization, Other)
  Sender: FDA-Public Use
  Company Number: IT-009507513-2302ITA007677

PATIENT
  Age: 53 Year
  Sex: Female

DRUGS (7)
  1. PACLITAXEL [Suspect]
     Active Substance: PACLITAXEL
     Indication: Product used for unknown indication
     Dosage: UNK, 5 CYCLES
     Route: 065
  2. CARBOPLATIN [Suspect]
     Active Substance: CARBOPLATIN
     Indication: Product used for unknown indication
     Dosage: UNK, 5 CYCLES
     Route: 065
  3. PEMBROLIZUMAB [Suspect]
     Active Substance: PEMBROLIZUMAB
     Indication: Triple negative breast cancer
     Dosage: UNK, Q3W (TOTAL DAILY DOSE REPORTED AS 2, Q3W)
     Route: 042
     Dates: start: 20221206, end: 20221227
  4. PREDNISONE [Concomitant]
     Active Substance: PREDNISONE
     Indication: Renal failure
     Dosage: 50 MILLIGRAM, QD (25 MILLIGRAM, BID)
     Route: 048
     Dates: start: 20230131
  5. PANTOPRAZOLE [Concomitant]
     Active Substance: PANTOPRAZOLE
     Indication: Steroid therapy
     Dosage: 40 MILLIGRAM, QD
     Route: 048
     Dates: start: 20230131
  6. ERTAPENEM [Concomitant]
     Active Substance: ERTAPENEM
     Indication: Kidney infection
     Dosage: UNK, QD
     Route: 065
     Dates: start: 20230116, end: 20230122
  7. ERYTHROPOIETIN [Concomitant]
     Active Substance: ERYTHROPOIETIN
     Indication: Erythropoiesis abnormal
     Dosage: 4000 AS TOTAL DAILY DOSE, BIW
     Route: 058
     Dates: start: 20230120, end: 20230214

REACTIONS (4)
  - Renal failure [Recovering/Resolving]
  - Hydronephrosis [Unknown]
  - Urinary tract infection [Unknown]
  - Product use issue [Unknown]

NARRATIVE: CASE EVENT DATE: 20230116
